FAERS Safety Report 13941623 (Version 3)
Quarter: 2017Q4

REPORT INFORMATION
  Report Type: Report from Study
  Country: US (occurrence: US)
  Receive Date: 20170906
  Receipt Date: 20171120
  Transmission Date: 20180320
  Serious: Yes (Death, Hospitalization, Other)
  Sender: FDA-Public Use
  Company Number: US-ACTELION-A-NJ2017-158904

PATIENT
  Age: 69 Year
  Sex: Female

DRUGS (10)
  1. ADCIRCA [Concomitant]
     Active Substance: TADALAFIL
     Dosage: 40 MG, QD
     Route: 048
  2. LASIX [Concomitant]
     Active Substance: FUROSEMIDE
     Dosage: 40 MG, UNK
  3. MIDODRINE [Concomitant]
     Active Substance: MIDODRINE
     Dosage: 5 MG, UNK
  4. UPTRAVI [Suspect]
     Active Substance: SELEXIPAG
     Indication: PULMONARY ARTERIAL HYPERTENSION
     Dosage: 1600 MCG, BID
     Route: 048
  5. TRACLEER [Suspect]
     Active Substance: BOSENTAN
     Indication: PULMONARY ARTERIAL HYPERTENSION
     Dosage: UNK
     Route: 048
     Dates: start: 201302, end: 20170822
  6. HYDROCODONE BITARTRATE AND ACETAMINOPHEN [Concomitant]
     Active Substance: ACETAMINOPHEN\HYDROCODONE BITARTRATE
  7. LEVOTHYROXINE. [Concomitant]
     Active Substance: LEVOTHYROXINE
     Dosage: 88 MCG, UNK
  8. TRADJENTA [Concomitant]
     Active Substance: LINAGLIPTIN
     Dosage: 5 MG, UNK
  9. FERROUS SULFATE. [Concomitant]
     Active Substance: FERROUS SULFATE
     Dosage: 325 MG, UNK
  10. OMEPRAZOLE. [Concomitant]
     Active Substance: OMEPRAZOLE
     Dosage: 40 MG, UNK

REACTIONS (46)
  - Pneumonia klebsiella [Unknown]
  - Cyanosis [Unknown]
  - Atrial fibrillation [Unknown]
  - Swelling [Not Recovered/Not Resolved]
  - Pleural effusion [Unknown]
  - Arteriovenous fistula occlusion [Unknown]
  - Pericardial effusion [Unknown]
  - Asthenia [Unknown]
  - Dyspnoea [Unknown]
  - Dialysis [Unknown]
  - Sepsis [Unknown]
  - Leukocytosis [Not Recovered/Not Resolved]
  - Death [Fatal]
  - Hypoglycaemia [Unknown]
  - Hypotension [Unknown]
  - Urinary tract infection [Unknown]
  - Colitis [Unknown]
  - Haemoglobin decreased [Recovering/Resolving]
  - End stage renal disease [Unknown]
  - Encephalopathy [Unknown]
  - Peritonitis bacterial [Unknown]
  - White blood cell count increased [Not Recovered/Not Resolved]
  - Erythema [Not Recovered/Not Resolved]
  - Glomerular filtration rate decreased [Not Recovered/Not Resolved]
  - Platelet count decreased [Recovering/Resolving]
  - Cardiomegaly [Unknown]
  - Abdominal pain [Unknown]
  - Generalised oedema [Unknown]
  - Hepatic cirrhosis [Unknown]
  - Nausea [Unknown]
  - Feeling abnormal [Unknown]
  - Peripheral swelling [Unknown]
  - Hyperkalaemia [Unknown]
  - Diarrhoea [Unknown]
  - Hypoxia [Unknown]
  - Lactic acidosis [Recovering/Resolving]
  - Tachycardia [Unknown]
  - Chronic kidney disease [Unknown]
  - Hyponatraemia [Unknown]
  - Fluid overload [Unknown]
  - Ascites [Unknown]
  - Chronic respiratory failure [Unknown]
  - Cellulitis [Recovering/Resolving]
  - Lung consolidation [Unknown]
  - Metabolic acidosis [Unknown]
  - Fatigue [Unknown]

NARRATIVE: CASE EVENT DATE: 20170825
